FAERS Safety Report 8804497 (Version 1)
Quarter: 2012Q4

REPORT INFORMATION
  Report Type: 
  Country: US (occurrence: US)
  Receive Date: 20120923
  Receipt Date: 20120923
  Transmission Date: 20130627
  Serious: No
  Sender: FDA-Public Use
  Company Number: US-009507513-1208USA010359

PATIENT

DRUGS (2)
  1. EMEND [Suspect]
     Indication: PROPHYLAXIS OF NAUSEA AND VOMITING
  2. IRINOTECAN HYDROCHLORIDE [Concomitant]

REACTIONS (2)
  - Drug ineffective [Unknown]
  - Diarrhoea [Unknown]
